FAERS Safety Report 25752685 (Version 1)
Quarter: 2025Q3

REPORT INFORMATION
  Report Type: Spontaneous
  Country: EU (occurrence: EU)
  Receive Date: 20250902
  Receipt Date: 20250902
  Transmission Date: 20251021
  Serious: Yes (Other)
  Sender: ELI LILLY AND COMPANY
  Company Number: EU-ELI_LILLY_AND_COMPANY-FI202508029176

PATIENT
  Age: 32 Year
  Sex: Male

DRUGS (1)
  1. TALTZ [Suspect]
     Active Substance: IXEKIZUMAB
     Indication: Psoriatic arthropathy
     Route: 065

REACTIONS (7)
  - Petit mal epilepsy [Recovering/Resolving]
  - Loss of consciousness [Recovering/Resolving]
  - Malaise [Not Recovered/Not Resolved]
  - Thirst [Recovering/Resolving]
  - Paraesthesia [Recovering/Resolving]
  - Throat tightness [Recovering/Resolving]
  - Asthenia [Not Recovered/Not Resolved]
